FAERS Safety Report 10277985 (Version 1)
Quarter: 2014Q3

REPORT INFORMATION
  Report Type: Spontaneous
  Country: US (occurrence: US)
  Receive Date: 20140704
  Receipt Date: 20140704
  Transmission Date: 20150326
  Serious: No
  Sender: FDA-Public Use
  Company Number: US-009507513-1406USA010629

PATIENT

DRUGS (2)
  1. DULERA [Suspect]
     Active Substance: FORMOTEROL FUMARATE DIHYDRATE\MOMETASONE FUROATE
     Dosage: ROUTE - INHALATION, DOSAGE FORM - AEROSOL, NDC # 0085-4610-05
     Route: 055
  2. DULERA [Suspect]
     Active Substance: FORMOTEROL FUMARATE DIHYDRATE\MOMETASONE FUROATE
     Dosage: ROUTE - INHALATION, DOSAGE FORM - AEROSOL, NDC # 0085-7206-07
     Route: 055

REACTIONS (2)
  - Product label confusion [Unknown]
  - Circumstance or information capable of leading to medication error [Unknown]
